FAERS Safety Report 7764513-7 (Version None)
Quarter: 2011Q3

REPORT INFORMATION
  Report Type: 
  Country: None (occurrence: None)
  Receive Date: 20110921
  Receipt Date: 20110706
  Transmission Date: 20111222
  Serious: No
  Sender: FDA-Public Use
  Company Number: US-BAYER-2011-059906

PATIENT
  Sex: Female
  Weight: 79 kg

DRUGS (4)
  1. PRINZIDE [Concomitant]
  2. SYNTHROID [Concomitant]
     Indication: HYPOTHYROIDISM
  3. DOXYCYCLINE HYCLATE [Concomitant]
  4. ALEVE (CAPLET) [Suspect]
     Indication: ANALGESIC THERAPY
     Dosage: AS NEEDED
     Route: 048
     Dates: start: 20110705

REACTIONS (1)
  - PAIN [None]
